FAERS Safety Report 16848997 (Version 1)
Quarter: 2019Q3

REPORT INFORMATION
  Report Type: Spontaneous
  Country: US (occurrence: US)
  Receive Date: 20190925
  Receipt Date: 20190925
  Transmission Date: 20191005
  Serious: Yes (Other)
  Sender: FDA-Public Use
  Company Number: US-GILEAD-2019-0429502

PATIENT
  Age: 31 Year
  Sex: Male

DRUGS (1)
  1. COMPLERA [Suspect]
     Active Substance: EMTRICITABINE\RILPIVIRINE HYDROCHLORIDE\TENOFOVIR DISOPROXIL FUMARATE
     Indication: HIV INFECTION
     Dosage: UNK
     Route: 048
     Dates: start: 2011

REACTIONS (10)
  - Pain [Not Recovered/Not Resolved]
  - Stress [Unknown]
  - Frustration tolerance decreased [Unknown]
  - Anhedonia [Not Recovered/Not Resolved]
  - Economic problem [Not Recovered/Not Resolved]
  - Chronic kidney disease [Unknown]
  - Emotional distress [Not Recovered/Not Resolved]
  - Decreased activity [Not Recovered/Not Resolved]
  - Anxiety [Not Recovered/Not Resolved]
  - Quality of life decreased [Not Recovered/Not Resolved]
